FAERS Safety Report 25616328 (Version 1)
Quarter: 2025Q3

REPORT INFORMATION
  Report Type: Spontaneous
  Country: JP (occurrence: JP)
  Receive Date: 20250729
  Receipt Date: 20250729
  Transmission Date: 20251021
  Serious: Yes (Hospitalization, Other)
  Sender: RANBAXY
  Company Number: JP-SUN PHARMACEUTICAL INDUSTRIES LTD-2025R1-517393

PATIENT
  Age: 89 Year
  Sex: Female
  Weight: 41.5 kg

DRUGS (24)
  1. TEGRETOL [Suspect]
     Active Substance: CARBAMAZEPINE
     Indication: Product used for unknown indication
     Dosage: 50 MILLIGRAM, QD, EVENING
     Route: 048
     Dates: start: 20250312, end: 20250406
  2. TEGRETOL [Suspect]
     Active Substance: CARBAMAZEPINE
     Dosage: 100 MILLIGRAM, QD, EVENING
     Route: 048
     Dates: start: 20250407, end: 20250501
  3. TEGRETOL [Suspect]
     Active Substance: CARBAMAZEPINE
     Dosage: MORNING 50 MG, EVENING 100 MG
     Route: 048
     Dates: start: 20250502, end: 20250508
  4. TEGRETOL [Suspect]
     Active Substance: CARBAMAZEPINE
     Dosage: 100 MG AFTER BREAKFAST ,100 MG AFTER DINNER
     Route: 048
     Dates: start: 20250509, end: 20250605
  5. TEGRETOL [Suspect]
     Active Substance: CARBAMAZEPINE
     Dosage: 100 MG AFTER BREAKFAST ,200 MG AFTER DINNER
     Route: 048
     Dates: start: 20250606, end: 20250624
  6. SODIUM CHLORIDE [Concomitant]
     Active Substance: SODIUM CHLORIDE
     Indication: Product used for unknown indication
     Dosage: 1 GRAM, BID, AFTER BREAKFAST AND DINNER
     Route: 065
     Dates: end: 20250624
  7. LAGNOS NF Mental Roselly Sachet 12g [Concomitant]
     Indication: Product used for unknown indication
     Dosage: 12 GRAM, QD, AFTER BREAKFAST
     Route: 065
     Dates: end: 20250624
  8. QUETIAPINE Tablets 12.5mg [Amel] [Concomitant]
     Indication: Product used for unknown indication
     Dosage: 12.5 MILLIGRAM, QD, AFTER LUNCH
     Route: 065
     Dates: end: 20250624
  9. REXULTI OD Tablets 0.5mg [Concomitant]
     Indication: Product used for unknown indication
     Dosage: 0.5 MILLIGRAM, QD, AFTER DINNER
     Route: 065
     Dates: end: 20250624
  10. DULOXETINE OD Tablets 30mg [Nipro] [Concomitant]
     Indication: Product used for unknown indication
     Dosage: 30 MILLIGRAM, QD, AFTER BREAKFAST
     Route: 065
     Dates: end: 20250624
  11. MAGNESIUM OXIDE Tablets 330mg [Yoshida] [Concomitant]
     Indication: Product used for unknown indication
     Dosage: 330 MILLIGRAM, QD, AFTER BREAKFAST
     Route: 065
     Dates: end: 20250624
  12. LANSOPRAZOLE OD Tablets 15mg [Towa] [Concomitant]
     Indication: Product used for unknown indication
     Dosage: 15 MILLIGRAM, QD, AFTER DINNER
     Route: 065
     Dates: end: 20250624
  13. MIRTAZAPINE Tablets 30mg [Sawai] [Concomitant]
     Indication: Product used for unknown indication
     Dosage: 30 MILLIGRAM, QD, AFTER DINNER
     Route: 065
     Dates: end: 20250624
  14. RAMELTEON Tablets 8mg [Kyorin] [Concomitant]
     Indication: Product used for unknown indication
     Dosage: 8 MILLIGRAM, QD, AFTER DINNER
     Route: 065
     Dates: end: 20250624
  15. Memantine Hydrochloride OD Tablets 10mg [Amel] [Concomitant]
     Indication: Product used for unknown indication
     Dosage: 10 MILLIGRAM, QD, AFTER DINNER
     Route: 065
     Dates: end: 20250624
  16. EPINASTINE HYDROCHLORIDE Tablets 20mg [Chemiphar] [Concomitant]
     Indication: Product used for unknown indication
     Dosage: 20 MILLIGRAM, QD, AFTER DINNER
     Route: 065
     Dates: end: 20250624
  17. ESCITALOPRAM OD Tablets 10mg [Sawai] [Concomitant]
     Indication: Product used for unknown indication
     Dosage: 10 MILLIGRAM, QD, AFTER DINNER
     Route: 065
     Dates: end: 20250624
  18. TRAZODONE HYDROCHLORIDE Tablets 50mg [Amel] [Concomitant]
     Indication: Product used for unknown indication
     Dosage: 100 MILLIGRAM, QD, AFTER DINNER
     Route: 065
     Dates: end: 20250624
  19. QUETIAPINE Tablets 25mg [Amel] [Concomitant]
     Indication: Product used for unknown indication
     Dosage: 25 MILLIGRAM, QD, AFTER DINNER
     Route: 065
     Dates: end: 20250624
  20. DAYVIGO Tablets 5mg [Concomitant]
     Indication: Product used for unknown indication
     Dosage: 5 MILLIGRAM, QD, AFTER DINNER
     Route: 065
     Dates: end: 20250624
  21. SAMSCA [Concomitant]
     Active Substance: TOLVAPTAN
     Indication: Product used for unknown indication
     Dosage: 0.5 DOSAGE FORM, QD, AFTER LUNCH
     Route: 065
     Dates: start: 20250609, end: 20250624
  22. FUROSEMIDE Tablets 20mg [SN] [Concomitant]
     Indication: Product used for unknown indication
     Dosage: 20 MILLIGRAM, BID, AFTER BREAKFAST AND LUNCH
     Route: 065
     Dates: start: 20250609, end: 20250624
  23. Duvroq Tablets 2mg [Concomitant]
     Indication: Product used for unknown indication
     Dosage: 2 MILLIGRAM, QD, AFTER BREAKFAST
     Route: 065
     Dates: start: 20250611, end: 20250624
  24. ATARAX-P Dry syrup 2.5% [Concomitant]
     Indication: Product used for unknown indication
     Dosage: 1 GRAM, TID, AFTER BREAKFAST, LUNCH AND DINNER
     Route: 065
     Dates: start: 20250619, end: 20250624

REACTIONS (2)
  - Bradycardia [Recovered/Resolved]
  - Cardiac failure congestive [Recovered/Resolved]

NARRATIVE: CASE EVENT DATE: 20250607
